FAERS Safety Report 21696166 (Version 1)
Quarter: 2022Q4

REPORT INFORMATION
  Report Type: Spontaneous
  Country: US (occurrence: None)
  Receive Date: 20221207
  Receipt Date: 20221207
  Transmission Date: 20230113
  Serious: Yes (Hospitalization)
  Sender: FDA-Public Use
  Company Number: None

PATIENT
  Age: 61 Year
  Sex: Male
  Weight: 83 kg

DRUGS (1)
  1. OXCARBAZEPINE [Suspect]
     Active Substance: OXCARBAZEPINE
     Indication: Neuralgia
     Dosage: 1 TAB BID PO
     Route: 048
     Dates: start: 20220822, end: 20221012

REACTIONS (2)
  - Dysphagia [None]
  - Throat tightness [None]

NARRATIVE: CASE EVENT DATE: 20221012
